FAERS Safety Report 6932946-4 (Version None)
Quarter: 2010Q3

REPORT INFORMATION
  Report Type: 
  Country: None (occurrence: None)
  Receive Date: 20100817
  Receipt Date: 20100803
  Transmission Date: 20110219
  Serious: Yes (Hospitalization)
  Sender: FDA-Public Use
  Company Number: A-NJ2010-37182

PATIENT
  Age: 77 Year
  Sex: Female

DRUGS (3)
  1. TRACLEER [Suspect]
     Indication: PULMONARY ARTERIAL HYPERTENSION
     Dosage: 125 MG, BID, ORAL, 62.5 MG BID, ORAL, ORAL,
     Route: 048
     Dates: start: 20100123, end: 20100223
  2. TRACLEER [Suspect]
     Indication: PULMONARY ARTERIAL HYPERTENSION
     Dosage: 125 MG, BID, ORAL, 62.5 MG BID, ORAL, ORAL,
     Route: 048
     Dates: start: 20100224, end: 20100615
  3. TRACLEER [Suspect]
     Indication: PULMONARY ARTERIAL HYPERTENSION
     Dosage: 125 MG, BID, ORAL, 62.5 MG BID, ORAL, ORAL,
     Route: 048
     Dates: start: 20100722

REACTIONS (6)
  - ABNORMAL LOSS OF WEIGHT [None]
  - BACTERIAL SEPSIS [None]
  - CARDIAC FAILURE CONGESTIVE [None]
  - DYSPNOEA [None]
  - FLUID OVERLOAD [None]
  - RENAL DISORDER [None]
